FAERS Safety Report 6054979-5 (Version None)
Quarter: 2009Q1

REPORT INFORMATION
  Report Type: 
  Country: None (occurrence: None)
  Receive Date: 20090122
  Receipt Date: 20090107
  Transmission Date: 20090719
  Serious: Yes (Death, Hospitalization, Other)
  Sender: FDA-Public Use
  Company Number: 55908

PATIENT
  Age: 64 Year
  Sex: Female

DRUGS (1)
  1. AZATHIOPRINE SODIUM [Suspect]
     Indication: HYPEREOSINOPHILIC SYNDROME
     Dosage: 100MG DAILY FOR 3 YEARS; REDUCED TO 75MG DA

REACTIONS (7)
  - ACUTE MYELOID LEUKAEMIA [None]
  - CELLULITIS [None]
  - DYSPLASIA [None]
  - NEUTROPENIA [None]
  - OEDEMA PERIPHERAL [None]
  - PULMONARY HAEMORRHAGE [None]
  - SEPTIC SHOCK [None]
